FAERS Safety Report 7961452-3 (Version None)
Quarter: 2011Q4

REPORT INFORMATION
  Report Type: 
  Country: None (occurrence: None)
  Receive Date: 20111202
  Receipt Date: 20111117
  Transmission Date: 20120403
  Serious: Yes (Hospitalization)
  Sender: FDA-Public Use
  Company Number: 1000025759

PATIENT
  Age: 61 Year
  Sex: Female

DRUGS (10)
  1. TEGRETOL [Suspect]
     Indication: MULTIPLE DRUG OVERDOSE INTENTIONAL
     Dosage: OVERDOSE: 9 TABLETS OF 200 MG. (200 MG, ONCE), ORAL
     Route: 048
     Dates: start: 20110430, end: 20110430
  2. SIMVASTATIN [Concomitant]
  3. ATENOLOL [Concomitant]
  4. TABOR (LORAZEPAM) [Concomitant]
  5. PRAZENE (PRAZEPAM) (TABLETS) [Suspect]
     Indication: PRODUCT USED FOR UNKNOWN INDICATION
     Dosage: OVERDOSE: 15 10 MG TABLETS (10 MG, ONCE), ORAL
     Route: 048
     Dates: start: 20110430, end: 20110430
  6. LENDORMIN (BROTIZOLAM) (0.25 MILLIGRAM, TABLETS) [Suspect]
     Indication: PRODUCT USED FOR UNKNOWN INDICATION
     Dosage: 1 TABLET, ORAL
     Route: 048
     Dates: start: 20110430, end: 20110430
  7. ISOPTIN [Concomitant]
  8. METFORAL (METFORMIN HYDROCHLORIDE) [Concomitant]
  9. ESCITALOPRAM OXALATE [Suspect]
     Indication: PRODUCT USED FOR UNKNOWN INDICATION
     Dosage: OVERDOSE: 14 TABLETS OF 20 MG.  (20 MG, ONCE), ORAL
     Route: 048
     Dates: start: 20110430, end: 20110430
  10. ACETYLSALICYLIC ACID SRT [Concomitant]

REACTIONS (4)
  - INTENTIONAL OVERDOSE [None]
  - MOOD ALTERED [None]
  - SOCIAL AVOIDANT BEHAVIOUR [None]
  - FEELING ABNORMAL [None]
